FAERS Safety Report 22009830 (Version 1)
Quarter: 2023Q1

REPORT INFORMATION
  Report Type: Other
  Country: None (occurrence: BE)
  Receive Date: 20230220
  Receipt Date: 20230220
  Transmission Date: 20230417
  Serious: Yes (Hospitalization, Other)
  Sender: FDA-Public Use
  Company Number: BE-Spectra Medical Devices, LLC-2138179

PATIENT
  Age: 74 Year
  Sex: Male

DRUGS (7)
  1. SODIUM CHLORIDE [Suspect]
     Active Substance: SODIUM CHLORIDE
     Indication: Irrigation therapy
     Route: 065
  2. ALFENTANIL [Concomitant]
     Active Substance: ALFENTANIL
     Route: 065
  3. PROPOFOL [Concomitant]
     Active Substance: PROPOFOL
     Route: 065
  4. LACTATED RINGERS SOLUTION [Concomitant]
     Active Substance: CALCIUM CHLORIDE\POTASSIUM CHLORIDE\SODIUM CHLORIDE\SODIUM LACTATE
     Route: 065
  5. SEVOFLURANE [Concomitant]
     Active Substance: SEVOFLURANE
     Route: 065
  6. NITROUS OXIDE [Concomitant]
     Active Substance: NITROUS OXIDE
     Route: 065
  7. TAMSULOSIN HYDROCHLORIDE [Concomitant]
     Active Substance: TAMSULOSIN HYDROCHLORIDE
     Route: 065

REACTIONS (1)
  - Transurethral resection syndrome [Recovered/Resolved]
